FAERS Safety Report 9094955 (Version 1)
Quarter: 2013Q1

REPORT INFORMATION
  Report Type: Spontaneous
  Country: US (occurrence: None)
  Receive Date: 20130123
  Receipt Date: 20130123
  Transmission Date: 20140127
  Serious: Yes (Death, Hospitalization, Other)
  Sender: FDA-Public Use
  Company Number: AUR-APL-2013-00636

PATIENT
  Age: 38 Year
  Sex: Female

DRUGS (5)
  1. DIVALPROEX [Suspect]
     Indication: AGITATION
  2. DIVALPROEX [Suspect]
     Indication: ABNORMAL BEHAVIOUR
  3. PERPHENAZINE [Suspect]
     Indication: PRODUCT USED FOR UNKNOWN INDICATION
     Dosage: 4 MG EVERY MORNING AND 6 MG EVERY EVENING
  4. CYCLOBENZAPRINE [Concomitant]
  5. SERTRALINE [Concomitant]

REACTIONS (35)
  - Somnolence [None]
  - Confusional state [None]
  - Agitation [None]
  - Abnormal behaviour [None]
  - Road traffic accident [None]
  - Neck pain [None]
  - Tachycardia [None]
  - Muscle rigidity [None]
  - Bruxism [None]
  - Unresponsive to stimuli [None]
  - Gaze palsy [None]
  - Posturing [None]
  - Hyperreflexia [None]
  - Clonus [None]
  - Neuroleptic malignant syndrome [None]
  - Serotonin syndrome [None]
  - Blood creatine phosphokinase increased [None]
  - White blood cell count increased [None]
  - Blood glucose increased [None]
  - Lung consolidation [None]
  - Aspiration [None]
  - Brain oedema [None]
  - Electroencephalogram abnormal [None]
  - Intracranial pressure increased [None]
  - Hyperammonaemia [None]
  - Continuous haemodiafiltration [None]
  - Status epilepticus [None]
  - Bradycardia [None]
  - Pupil fixed [None]
  - Brain herniation [None]
  - Brain injury [None]
  - Histology abnormal [None]
  - Hepatomegaly [None]
  - Liver disorder [None]
  - Gene mutation [None]
